FAERS Safety Report 8334998-6 (Version None)
Quarter: 2012Q2

REPORT INFORMATION
  Report Type: 
  Country: None (occurrence: None)
  Receive Date: 20120503
  Receipt Date: 20120423
  Transmission Date: 20120825
  Serious: Yes (Other)
  Sender: FDA-Public Use
  Company Number: DE-FRI-1000030252

PATIENT
  Age: 59 Year
  Sex: Female
  Weight: 69 kg

DRUGS (6)
  1. PREDNISOLONE [Concomitant]
     Indication: CHRONIC OBSTRUCTIVE PULMONARY DISEASE
     Dates: start: 20110401
  2. SPIRIVA [Concomitant]
     Indication: CHRONIC OBSTRUCTIVE PULMONARY DISEASE
     Dates: start: 20101006
  3. AVELOX [Concomitant]
     Indication: PNEUMONIA
     Dates: start: 20110802, end: 20110805
  4. ROFLUMILAST [Suspect]
     Indication: CHRONIC OBSTRUCTIVE PULMONARY DISEASE
     Dosage: 500 MCG
     Route: 048
     Dates: start: 20110405, end: 20110805
  5. VANI FORTE DISCUS [Concomitant]
     Indication: CHRONIC OBSTRUCTIVE PULMONARY DISEASE
     Dates: start: 20101006
  6. IVABRADIN [Concomitant]
     Indication: TACHYCARDIA
     Dates: start: 20110802, end: 20110815

REACTIONS (6)
  - PRURITUS GENERALISED [None]
  - HEADACHE [None]
  - NAUSEA [None]
  - DEPRESSED MOOD [None]
  - SLEEP DISORDER [None]
  - DIZZINESS [None]
